FAERS Safety Report 6307434-9 (Version None)
Quarter: 2009Q3

REPORT INFORMATION
  Report Type: 
  Country: None (occurrence: None)
  Receive Date: 20090813
  Receipt Date: 20090601
  Transmission Date: 20100115
  Serious: No
  Sender: FDA-Public Use
  Company Number: US-BRISTOL-MYERS SQUIBB COMPANY-14643993

PATIENT
  Age: 62 Year
  Sex: Female
  Weight: 61 kg

DRUGS (1)
  1. IXEMPRA KIT [Suspect]
     Indication: BREAST CANCER STAGE IV
     Dates: start: 20090511, end: 20090511

REACTIONS (1)
  - ALOPECIA [None]
